FAERS Safety Report 13233487 (Version 1)
Quarter: 2017Q1

REPORT INFORMATION
  Report Type: Spontaneous
  Country: US (occurrence: US)
  Receive Date: 20170214
  Receipt Date: 20170214
  Transmission Date: 20170428
  Serious: Yes (Hospitalization)
  Sender: FDA-Public Use
  Company Number: None

PATIENT
  Age: 54 Year
  Sex: Female

DRUGS (2)
  1. CEFAZOLIN 2 GRAM SAGENT PHARMACEUTICAL [Suspect]
     Active Substance: CEFAZOLIN SODIUM
     Indication: POST PROCEDURAL INFECTION
     Route: 042
     Dates: start: 20170131, end: 20170204
  2. CEFAZOLIN 2 GRAM SAGENT PHARMACEUTICAL [Suspect]
     Active Substance: CEFAZOLIN SODIUM
     Indication: DEVICE RELATED INFECTION
     Route: 042
     Dates: start: 20170131, end: 20170204

REACTIONS (1)
  - Petechiae [None]

NARRATIVE: CASE EVENT DATE: 20170204
